FAERS Safety Report 7156647-5 (Version None)
Quarter: 2010Q4

REPORT INFORMATION
  Report Type: 
  Country: None (occurrence: None)
  Receive Date: 20101214
  Receipt Date: 20100205
  Transmission Date: 20110411
  Serious: No
  Sender: FDA-Public Use
  Company Number: US-ASTRAZENECA-2006UW20484

PATIENT
  Age: 63 Year
  Sex: Female
  Weight: 69.4 kg

DRUGS (8)
  1. CRESTOR [Suspect]
     Indication: HYPERCHOLESTEROLAEMIA
     Route: 048
     Dates: start: 20060626, end: 20061018
  2. CRESTOR [Suspect]
     Route: 048
  3. FOSAMAX [Concomitant]
  4. CALCIUM [Concomitant]
  5. MULTI-VITAMINS [Concomitant]
  6. ASCORBIC ACID [Concomitant]
  7. VITAMIN A [Concomitant]
  8. ASPIRIN [Concomitant]

REACTIONS (3)
  - DYSPHAGIA [None]
  - MYALGIA [None]
  - SENSATION OF FOREIGN BODY [None]
